FAERS Safety Report 15713661 (Version 1)
Quarter: 2018Q4

REPORT INFORMATION
  Report Type: Spontaneous
  Country: US (occurrence: US)
  Receive Date: 20181212
  Receipt Date: 20181212
  Transmission Date: 20190205
  Serious: Yes (Life-Threatening)
  Sender: FDA-Public Use
  Company Number: None

PATIENT
  Age: 42 Year
  Sex: Male
  Weight: 111.8 kg

DRUGS (1)
  1. SUGAMMADEX [Suspect]
     Active Substance: SUGAMMADEX
     Indication: ANAESTHESIA REVERSAL
     Dosage: ?          OTHER FREQUENCY:ONCE;?
     Dates: start: 20181210

REACTIONS (2)
  - Anaesthetic complication [None]
  - Pulseless electrical activity [None]

NARRATIVE: CASE EVENT DATE: 20181210
